FAERS Safety Report 4593885-X (Version None)
Quarter: 2005Q1

REPORT INFORMATION
  Report Type: 
  Country: None (occurrence: None)
  Receive Date: 20050301
  Receipt Date: 20041125
  Transmission Date: 20050727
  Serious: Yes (Other)
  Sender: FDA-Public Use
  Company Number: DE-GLAXOSMITHKLINE-D0045323A

PATIENT

DRUGS (5)
  1. DERMOXIN [Suspect]
     Route: 061
  2. BASISCREME [Suspect]
     Route: 061
  3. ULTRALAN [Concomitant]
     Route: 065
  4. TRIAMCINOLONE [Concomitant]
     Route: 065
  5. UNKNOWN DERMATOLOGIC CREAM [Concomitant]
     Route: 061

REACTIONS (1)
  - CATARACT [None]
